FAERS Safety Report 22525906 (Version 1)
Quarter: 2023Q2

REPORT INFORMATION
  Report Type: Spontaneous
  Country: DE (occurrence: DE)
  Receive Date: 20230606
  Receipt Date: 20230606
  Transmission Date: 20230721
  Serious: Yes (Other)
  Sender: FDA-Public Use
  Company Number: DE-IGSA-BIG0023551

PATIENT
  Age: 61 Year
  Sex: Female
  Weight: 48 kg

DRUGS (2)
  1. PROLASTIN [Suspect]
     Active Substance: .ALPHA.1-PROTEINASE INHIBITOR HUMAN
     Indication: Alpha-1 antitrypsin deficiency
     Dosage: 3 GRAM, Q.WK.
     Route: 042
     Dates: start: 20230516
  2. PROLASTIN [Suspect]
     Active Substance: .ALPHA.1-PROTEINASE INHIBITOR HUMAN
     Dosage: 3 GRAM, Q.WK.
     Route: 042
     Dates: start: 20230221

REACTIONS (1)
  - Raynaud^s phenomenon [Unknown]

NARRATIVE: CASE EVENT DATE: 20230516
